FAERS Safety Report 9419583 (Version 1)
Quarter: 2013Q3

REPORT INFORMATION
  Report Type: Spontaneous
  Country: GB (occurrence: GB)
  Receive Date: 20130725
  Receipt Date: 20130725
  Transmission Date: 20140515
  Serious: Yes (Hospitalization)
  Sender: FDA-Public Use
  Company Number: GB-PFIZER INC-2013211414

PATIENT
  Age: 71 Year
  Sex: Male
  Weight: 86 kg

DRUGS (3)
  1. DETRUSITOL XL [Suspect]
     Indication: POLLAKIURIA
     Dosage: 4 MG, UNK
     Route: 048
     Dates: start: 20130624, end: 20130626
  2. TAMSULOSIN HYDROCHLORIDE [Concomitant]
     Dosage: UNK
  3. SIMVASTATIN [Concomitant]
     Dosage: UNK

REACTIONS (2)
  - Dysuria [Recovered/Resolved with Sequelae]
  - Pain [Unknown]
